FAERS Safety Report 4807068-9 (Version None)
Quarter: 2005Q4

REPORT INFORMATION
  Report Type: 
  Country: None (occurrence: None)
  Receive Date: 20051024
  Receipt Date: 20051017
  Transmission Date: 20060501
  Serious: Yes (Hospitalization)
  Sender: FDA-Public Use
  Company Number: 200513387FR

PATIENT
  Age: 20 Year
  Sex: Female
  Weight: 42 kg

DRUGS (2)
  1. RODOGYL [Suspect]
     Indication: TOOTHACHE
     Route: 048
  2. ADVIL [Suspect]
     Indication: TOOTHACHE
     Route: 048

REACTIONS (4)
  - PRURITUS [None]
  - PYREXIA [None]
  - URTICARIA [None]
  - URTICARIA GENERALISED [None]
